FAERS Safety Report 5584366-5 (Version None)
Quarter: 2008Q1

REPORT INFORMATION
  Report Type: 
  Country: None (occurrence: None)
  Receive Date: 20080108
  Receipt Date: 20071228
  Transmission Date: 20080703
  Serious: Yes (Hospitalization)
  Sender: FDA-Public Use
  Company Number: NL-JNJFOC-20080100288

PATIENT
  Age: 3 Year
  Sex: Female

DRUGS (5)
  1. ACETAMINOPHEN [Suspect]
  2. ACETAMINOPHEN [Suspect]
     Indication: PYREXIA
  3. TOPIRAMATE [Suspect]
     Indication: CONVULSION
  4. VALPROIC ACID [Suspect]
     Indication: CONVULSION
  5. CLOBAZEPAM [Concomitant]

REACTIONS (1)
  - HEPATOTOXICITY [None]
